FAERS Safety Report 15904361 (Version 2)
Quarter: 2025Q1

REPORT INFORMATION
  Report Type: Report from Study
  Country: US (occurrence: US)
  Receive Date: 20190204
  Receipt Date: 20250206
  Transmission Date: 20250409
  Serious: Yes (Other)
  Sender: AMGEN
  Company Number: US-AMGEN-USASP2019016421

PATIENT
  Age: 65 Year
  Sex: Male
  Weight: 55.782 kg

DRUGS (11)
  1. ENBREL [Suspect]
     Active Substance: ETANERCEPT
     Indication: Rheumatoid arthritis
     Dosage: 50 MILLIGRAM, QWK
     Route: 058
     Dates: start: 201312
  2. COREG [Concomitant]
     Active Substance: CARVEDILOL
     Dosage: 6.25 MILLIGRAM, QID
     Route: 048
  3. HYDROCHLOROTHIAZIDE [Concomitant]
     Active Substance: HYDROCHLOROTHIAZIDE
     Route: 048
  4. PLAQUENIL [Concomitant]
     Active Substance: HYDROXYCHLOROQUINE SULFATE
     Dosage: 200 MILLIGRAM, QD
     Route: 048
  5. TRAMADOL [Concomitant]
     Active Substance: TRAMADOL
     Route: 048
  6. TRIVALENT INFLUENZA VACCINE [Concomitant]
     Dates: start: 20221012
  7. TRIVALENT INFLUENZA VACCINE [Concomitant]
     Dates: start: 20231012
  8. TRIVALENT INFLUENZA VACCINE [Concomitant]
     Dates: start: 20241012
  9. COVID-19 vaccine [Concomitant]
     Dates: start: 20231012
  10. PNEUMOCOCCAL VACCINE POLYVALENT NOS [Concomitant]
     Active Substance: PNEUMOCOCCAL VACCINE, POLYVALENT
  11. INFLUENZA VIRUS VACCINE [Concomitant]
     Active Substance: INFLUENZA VIRUS VACCINE
     Dates: start: 202410

REACTIONS (11)
  - Diverticulitis [Unknown]
  - Pain in extremity [Unknown]
  - Musculoskeletal stiffness [Unknown]
  - Pain [Unknown]
  - Joint space narrowing [Unknown]
  - Weight decreased [Unknown]
  - Liver disorder [Not Recovered/Not Resolved]
  - Essential hypertension [Unknown]
  - Hernia [Unknown]
  - Lymphadenopathy [Unknown]
  - Blood urine present [Unknown]

NARRATIVE: CASE EVENT DATE: 20150101
